FAERS Safety Report 17047809 (Version 1)
Quarter: 2019Q4

REPORT INFORMATION
  Report Type: Spontaneous
  Country: CA (occurrence: CA)
  Receive Date: 20191119
  Receipt Date: 20191119
  Transmission Date: 20200122
  Serious: Yes (Other)
  Sender: FDA-Public Use
  Company Number: CA-PFIZER INC-2019495535

PATIENT
  Age: 49 Year
  Sex: Male
  Weight: 107 kg

DRUGS (1)
  1. SULFASALAZINE. [Suspect]
     Active Substance: SULFASALAZINE
     Indication: COLITIS ULCERATIVE
     Dosage: 800 MG, 2X/DAY
     Route: 048

REACTIONS (2)
  - Colitis ulcerative [Recovered/Resolved]
  - Condition aggravated [Recovered/Resolved]
